FAERS Safety Report 20344245 (Version 2)
Quarter: 2022Q1

REPORT INFORMATION
  Report Type: Spontaneous
  Country: IT (occurrence: IT)
  Receive Date: 20220118
  Receipt Date: 20220211
  Transmission Date: 20220424
  Serious: Yes (Hospitalization)
  Sender: FDA-Public Use
  Company Number: None

PATIENT
  Age: 59 Year
  Sex: Female

DRUGS (12)
  1. GLECAPREVIR\PIBRENTASVIR [Suspect]
     Active Substance: GLECAPREVIR\PIBRENTASVIR
     Indication: Product used for unknown indication
     Dosage: 100 MG/40 MG
     Route: 048
     Dates: start: 20211026, end: 20211202
  2. ZAROXOLYN [Suspect]
     Active Substance: METOLAZONE
     Indication: Product used for unknown indication
     Route: 048
     Dates: start: 20211117, end: 20211206
  3. SINTROM [Concomitant]
     Active Substance: ACENOCOUMAROL
     Indication: Product used for unknown indication
  4. BISOPROLOL [Concomitant]
     Active Substance: BISOPROLOL
     Indication: Product used for unknown indication
  5. LANSOPRAZOLE [Concomitant]
     Active Substance: LANSOPRAZOLE
     Indication: Product used for unknown indication
  6. FUROSEMIDE [Concomitant]
     Active Substance: FUROSEMIDE
     Indication: Product used for unknown indication
  7. POTASSIUM CHLORIDE [Concomitant]
     Active Substance: POTASSIUM CHLORIDE
     Indication: Product used for unknown indication
  8. FLUIFORT [Concomitant]
     Indication: Product used for unknown indication
  9. ALDACTONE [Concomitant]
     Active Substance: SPIRONOLACTONE
     Indication: Product used for unknown indication
  10. ENTRESTO [Concomitant]
     Active Substance: SACUBITRIL\VALSARTAN
     Indication: Product used for unknown indication
     Dosage: 24 MG/26 MG
  11. TAVOR [Concomitant]
     Indication: Product used for unknown indication
  12. VENTOLIN [Concomitant]
     Active Substance: ALBUTEROL SULFATE
     Indication: Product used for unknown indication

REACTIONS (4)
  - Jaundice [Recovered/Resolved]
  - Hypertransaminasaemia [Recovered/Resolved]
  - Coma [Recovered/Resolved]
  - Hyponatraemia [Recovered/Resolved]

NARRATIVE: CASE EVENT DATE: 20211201
